FAERS Safety Report 24173404 (Version 1)
Quarter: 2024Q3

REPORT INFORMATION
  Report Type: Spontaneous
  Country: CN (occurrence: CN)
  Receive Date: 20240805
  Receipt Date: 20240805
  Transmission Date: 20241017
  Serious: Yes (Other)
  Sender: BEIGENE
  Company Number: CN-Eisai-EC-2024-161391

PATIENT

DRUGS (3)
  1. TISLELIZUMAB [Suspect]
     Active Substance: TISLELIZUMAB
     Indication: Hepatic cancer
     Dosage: UNK
  2. BEVACIZUMAB [Suspect]
     Active Substance: BEVACIZUMAB
     Indication: Hepatic cancer
     Dosage: UNK
  3. LENVATINIB [Suspect]
     Active Substance: LENVATINIB
     Indication: Hepatic cancer

REACTIONS (3)
  - Hepatic function abnormal [Unknown]
  - Platelet count decreased [Unknown]
  - Jaundice [Unknown]
